FAERS Safety Report 6096520-7 (Version None)
Quarter: 2009Q1

REPORT INFORMATION
  Report Type: 
  Country: None (occurrence: None)
  Receive Date: 20090225
  Receipt Date: 20090225
  Transmission Date: 20090719
  Serious: No
  Sender: FDA-Public Use
  Company Number: None

PATIENT
  Sex: Female
  Weight: 38.5557 kg

DRUGS (1)
  1. RECLAST [Suspect]
     Indication: OSTEOPOROSIS
     Dosage: IV 1 GIVEN BY MY CARDIOLOGIST
     Route: 042

REACTIONS (2)
  - CONDITION AGGRAVATED [None]
  - GLAUCOMA [None]
